FAERS Safety Report 7684671-2 (Version None)
Quarter: 2011Q3

REPORT INFORMATION
  Report Type: 
  Country: None (occurrence: None)
  Receive Date: 20110816
  Receipt Date: 20110805
  Transmission Date: 20111222
  Serious: Yes (Hospitalization, Other)
  Sender: FDA-Public Use
  Company Number: US-SP-2011-06322

PATIENT
  Age: 61 Year
  Sex: Male

DRUGS (2)
  1. IMOVAX RABIES I.D. [Suspect]
     Indication: PRODUCT USED FOR UNKNOWN INDICATION
     Route: 030
     Dates: start: 20110801, end: 20110801
  2. IMOGAM RABIES-HT [Suspect]
     Indication: PRODUCT USED FOR UNKNOWN INDICATION
     Dosage: 1 PARTIAL DOSE APPROX. 4 ML AROUNG THUMB
     Route: 030
     Dates: start: 20110801, end: 20110801

REACTIONS (6)
  - PARALYSIS [None]
  - LETHARGY [None]
  - OPHTHALMOPLEGIA [None]
  - ADVERSE REACTION [None]
  - HYPERHIDROSIS [None]
  - NEUROLOGICAL SYMPTOM [None]
